FAERS Safety Report 9874977 (Version 1)
Quarter: 2014Q1

REPORT INFORMATION
  Report Type: Spontaneous
  Country: US (occurrence: None)
  Receive Date: 20140205
  Receipt Date: 20140205
  Transmission Date: 20141002
  Serious: Yes (Disabling)
  Sender: FDA-Public Use
  Company Number: None

PATIENT
  Age: 50 Year
  Sex: Female
  Weight: 59.88 kg

DRUGS (1)
  1. TECFIDERA 240 MG BIOGEN IDEC [Suspect]
     Indication: MULTIPLE SCLEROSIS
     Route: 048
     Dates: start: 20130706, end: 20140204

REACTIONS (12)
  - Nausea [None]
  - Flatulence [None]
  - Flushing [None]
  - Pruritus [None]
  - Paraesthesia [None]
  - Neuralgia [None]
  - Joint stiffness [None]
  - Myalgia [None]
  - Pain [None]
  - Fatigue [None]
  - Bedridden [None]
  - Drug interaction [None]
